FAERS Safety Report 8327025-8 (Version None)
Quarter: 2012Q2

REPORT INFORMATION
  Report Type: 
  Country: None (occurrence: None)
  Receive Date: 20120501
  Receipt Date: 20120419
  Transmission Date: 20120825
  Serious: Yes (Other)
  Sender: FDA-Public Use
  Company Number: CA-ROCHE-GNE311972

PATIENT
  Sex: Male

DRUGS (5)
  1. PREDNISONE [Concomitant]
  2. XOLAIR [Suspect]
     Indication: ASTHMA
     Dosage: 300 MG, 1/MONTH
     Route: 058
     Dates: start: 20100519
  3. ADVAIR DISKUS 100/50 [Concomitant]
     Indication: PRODUCT USED FOR UNKNOWN INDICATION
  4. ALVESCO [Concomitant]
     Indication: PRODUCT USED FOR UNKNOWN INDICATION
  5. SINGULAIR [Concomitant]
     Indication: PRODUCT USED FOR UNKNOWN INDICATION

REACTIONS (8)
  - PNEUMONIA [None]
  - SINUSITIS [None]
  - VIRAL INFECTION [None]
  - ASTHMA [None]
  - DYSPNOEA [None]
  - BRONCHITIS [None]
  - WHEEZING [None]
  - FEELING ABNORMAL [None]
